FAERS Safety Report 16242354 (Version 4)
Quarter: 2019Q3

REPORT INFORMATION
  Report Type: Spontaneous
  Country: JP (occurrence: JP)
  Receive Date: 20190426
  Receipt Date: 20190910
  Transmission Date: 20191004
  Serious: Yes (Death, Hospitalization, Other)
  Sender: FDA-Public Use
  Company Number: JP-ROCHE-2307721

PATIENT
  Age: 79 Year
  Sex: Female
  Weight: 46 kg

DRUGS (6)
  1. AVASTIN [Suspect]
     Active Substance: BEVACIZUMAB
     Indication: OVARIAN CANCER
     Route: 041
     Dates: start: 20190304, end: 20190304
  2. PACLITAXEL. [Suspect]
     Active Substance: PACLITAXEL
     Indication: OVARIAN CANCER
     Route: 041
  3. ADALAT [Concomitant]
     Active Substance: NIFEDIPINE
     Dosage: DOSE INTERVAL UNCERTAINTY
     Route: 048
     Dates: start: 20190315, end: 20190406
  4. MICARDIS [Concomitant]
     Active Substance: TELMISARTAN
     Dosage: DOSE INTERVAL UNCERTAINTY
     Route: 048
     Dates: start: 20190319, end: 20190406
  5. HYCAMTIN [Concomitant]
     Active Substance: TOPOTECAN HYDROCHLORIDE
     Indication: OVARIAN CANCER
     Route: 041
     Dates: start: 20190304, end: 20190308
  6. CARBOPLATIN. [Suspect]
     Active Substance: CARBOPLATIN
     Indication: OVARIAN CANCER
     Route: 041

REACTIONS (4)
  - Hypertension [Not Recovered/Not Resolved]
  - Ovarian cancer [Fatal]
  - Blood creatine phosphokinase increased [Not Recovered/Not Resolved]
  - Dermatomyositis [Not Recovered/Not Resolved]

NARRATIVE: CASE EVENT DATE: 20190405
